FAERS Safety Report 9723496 (Version 1)
Quarter: 2013Q4

REPORT INFORMATION
  Report Type: Report from Study
  Country: IN (occurrence: IN)
  Receive Date: 20131202
  Receipt Date: 20131202
  Transmission Date: 20140711
  Serious: Yes (Other)
  Sender: FDA-Public Use
  Company Number: IN-B.I. PHARMACEUTICALS,INC./RIDGEFIELD-2013-BI-39192GD

PATIENT
  Age: 53 Year
  Sex: Female

DRUGS (6)
  1. CLONIDINE [Suspect]
     Indication: HYPERTENSION
     Dosage: 300 MCG
  2. PRAZOSIN [Suspect]
     Indication: HYPERTENSION
     Dosage: 10 MG
  3. METOPROLOL [Suspect]
     Indication: HYPERTENSION
     Dosage: 100 MG
  4. AMLODIPINE [Suspect]
     Indication: HYPERTENSION
     Dosage: 10 MG
  5. LOSARTAN [Suspect]
     Indication: HYPERTENSION
     Dosage: 50 MG
  6. FUROSEMIDE [Suspect]
     Indication: HYPERTENSION
     Dosage: 80 MG

REACTIONS (2)
  - Hypertension [Unknown]
  - Treatment failure [Unknown]
